FAERS Safety Report 4687509-0 (Version None)
Quarter: 2005Q2

REPORT INFORMATION
  Report Type: 
  Country: None (occurrence: None)
  Receive Date: 20050609
  Receipt Date: 20041115
  Transmission Date: 20051028
  Serious: Yes (Death, Hospitalization)
  Sender: FDA-Public Use
  Company Number: US-SANOFI-SYNTHELABO-F01200403586

PATIENT
  Sex: Male

DRUGS (17)
  1. OXALIPLATIN [Suspect]
     Indication: COLORECTAL CANCER METASTATIC
     Route: 042
  2. FLUOROURACIL [Suspect]
     Dosage: UNK Q2W OR WEEKLY
     Route: 042
  3. LEUCOVORIN [Suspect]
     Dosage: UNK Q2W OR WEEKLY
     Route: 042
  4. BEVACIZUMAB [Suspect]
     Route: 042
     Dates: start: 20040818, end: 20040818
  5. BEVACIZUMAB [Suspect]
     Route: 042
     Dates: start: 20050314, end: 20050314
  6. CAMPTOSAR [Concomitant]
  7. PHENERGAN [Concomitant]
  8. ATROPINE [Concomitant]
  9. DECADRON [Concomitant]
  10. BENADRYL [Concomitant]
  11. TAGAMET [Concomitant]
  12. SOMATOSTATIN [Concomitant]
  13. ATENOLOL [Concomitant]
  14. OXYCODONE HCL [Concomitant]
  15. PERCOCET [Concomitant]
  16. COUMADIN [Concomitant]
  17. LEVAQUIN [Concomitant]

REACTIONS (13)
  - ABDOMINAL DISTENSION [None]
  - ABDOMINAL PAIN [None]
  - CATHETER RELATED COMPLICATION [None]
  - CEREBRAL HAEMORRHAGE [None]
  - CHILLS [None]
  - DIARRHOEA [None]
  - DRUG INTERACTION [None]
  - FLATULENCE [None]
  - ILEITIS [None]
  - INTERNATIONAL NORMALISED RATIO INCREASED [None]
  - MALNUTRITION [None]
  - PYREXIA [None]
  - TREMOR [None]
